FAERS Safety Report 4607344-9 (Version None)
Quarter: 2005Q1

REPORT INFORMATION
  Report Type: 
  Country: None (occurrence: None)
  Receive Date: 20050311
  Receipt Date: 20050311
  Transmission Date: 20050727
  Serious: No
  Sender: FDA-Public Use
  Company Number: None

PATIENT
  Age: 69 Year
  Sex: Male
  Weight: 85.7298 kg

DRUGS (5)
  1. PROTONIX [Suspect]
     Indication: CHEST PAIN
     Dosage: 40 PO
     Route: 048
     Dates: start: 20041207, end: 20050125
  2. METFORMIN HCL [Concomitant]
  3. CRESTOR [Concomitant]
  4. AMBIEN [Concomitant]
  5. VIAGRA [Concomitant]

REACTIONS (1)
  - CHEST PAIN [None]
